FAERS Safety Report 10794128 (Version 2)
Quarter: 2015Q1

REPORT INFORMATION
  Report Type: Report from Study
  Country: IL (occurrence: IL)
  Receive Date: 20150213
  Receipt Date: 20150309
  Transmission Date: 20150721
  Serious: Yes (Death)
  Sender: FDA-Public Use
  Company Number: IL-JNJFOC-20150208509

PATIENT
  Age: 64 Year
  Sex: Female

DRUGS (1)
  1. IBRUTINIB [Suspect]
     Active Substance: IBRUTINIB
     Indication: CHRONIC LYMPHOCYTIC LEUKAEMIA
     Route: 048
     Dates: start: 20140629

REACTIONS (5)
  - Lymphadenopathy [Unknown]
  - Diarrhoea [Recovering/Resolving]
  - Death [Fatal]
  - Blood lactate dehydrogenase increased [Unknown]
  - Lymphocytosis [Unknown]
